FAERS Safety Report 5872482-X (Version None)
Quarter: 2008Q3

REPORT INFORMATION
  Report Type: 
  Country: None (occurrence: None)
  Receive Date: 20080905
  Receipt Date: 20080903
  Transmission Date: 20090109
  Serious: Yes (Death, Other)
  Sender: FDA-Public Use
  Company Number: PHHY2008JP18732

PATIENT
  Sex: Male
  Weight: 49 kg

DRUGS (9)
  1. ZOMETA [Suspect]
     Indication: METASTASES TO BONE
     Dosage: 4 MG, UNK
     Route: 042
     Dates: start: 20060613, end: 20060822
  2. ZOMETA [Suspect]
     Dosage: UNK
     Route: 042
     Dates: start: 20080803
  3. ZOMETA [Suspect]
     Dosage: 4 MG
     Route: 042
     Dates: start: 20060903
  4. INTERFERON ALFA [Concomitant]
     Dosage: 300X104U, 3 TIMES A WEEK
     Dates: start: 20060418
  5. INCADRONIC ACID [Concomitant]
     Dosage: 5 MG ONCE A WEEK
     Dates: start: 20060418
  6. PICIBANIL [Concomitant]
     Dosage: UNK
     Dates: start: 20060530
  7. THALIDOMIDE [Concomitant]
     Dosage: 100MG/DAY
  8. PROLEUKIN [Concomitant]
     Dosage: 70X10^4U, ONCE A WEEK
  9. CALCIUM [Suspect]
     Route: 042

REACTIONS (6)
  - CONDITION AGGRAVATED [None]
  - DEATH [None]
  - HICCUPS [None]
  - HYPOCALCAEMIA [None]
  - NEOPLASM PROGRESSION [None]
  - TETANY [None]
